FAERS Safety Report 11641397 (Version 2)
Quarter: 2015Q4

REPORT INFORMATION
  Report Type: Spontaneous
  Country: US (occurrence: US)
  Receive Date: 20151019
  Receipt Date: 20151023
  Transmission Date: 20160304
  Serious: No
  Sender: FDA-Public Use
  Company Number: US-HORIZON-RAV-0088-2015

PATIENT
  Age: 13 Year
  Sex: Female

DRUGS (3)
  1. CLINEX-2 [Concomitant]
  2. L-CITRULLINE [Concomitant]
     Active Substance: CITRULLINE
  3. RAVICTI [Suspect]
     Active Substance: GLYCEROL PHENYLBUTYRATE
     Indication: ORNITHINE TRANSCARBAMOYLASE DEFICIENCY
     Dosage: 3.5 ML TID

REACTIONS (1)
  - Aphthous ulcer [Recovered/Resolved]
